FAERS Safety Report 8912490 (Version 2)
Quarter: 2012Q4

REPORT INFORMATION
  Report Type: 
  Country: AU (occurrence: AU)
  Receive Date: 20121116
  Receipt Date: 20121211
  Transmission Date: 20130627
  Serious: Yes (Other)
  Sender: FDA-Public Use
  Company Number: AU-ROCHE-1154901

PATIENT
  Age: 45 Year
  Sex: Male
  Weight: 75 kg

DRUGS (2)
  1. ZELBORAF [Suspect]
     Indication: METASTATIC MALIGNANT MELANOMA
     Route: 048
     Dates: start: 20120816
  2. IBUPROFEN [Concomitant]
     Indication: SYNOVITIS
     Route: 048
     Dates: start: 20120901

REACTIONS (3)
  - Kawasaki^s disease [Unknown]
  - Squamous cell carcinoma [Unknown]
  - Dysplastic naevus [Recovered/Resolved]
